FAERS Safety Report 5038110-0 (Version None)
Quarter: 2006Q2

REPORT INFORMATION
  Report Type: 
  Country: None (occurrence: None)
  Receive Date: 20060622
  Receipt Date: 20060612
  Transmission Date: 20061013
  Serious: Yes (Death)
  Sender: FDA-Public Use
  Company Number: 2006-DE-03023GD

PATIENT
  Sex: 0

DRUGS (3)
  1. ZIDOVUDINE [Suspect]
  2. RIFAMPICIN [Suspect]
     Indication: TUBERCULOSIS
     Dosage: 5-8 MG/KG
  3. PYRAZINAMIDE [Suspect]
     Indication: TUBERCULOSIS
     Dosage: SEE TEXT

REACTIONS (5)
  - HEPATIC FAILURE [None]
  - HEPATIC STEATOSIS [None]
  - HEPATITIS [None]
  - HEPATOCELLULAR DAMAGE [None]
  - HEPATOTOXICITY [None]
